FAERS Safety Report 4506192-8 (Version None)
Quarter: 2004Q4

REPORT INFORMATION
  Report Type: 
  Country: None (occurrence: None)
  Receive Date: 20041025
  Receipt Date: 20031014
  Transmission Date: 20050328
  Serious: Yes (Other)
  Sender: FDA-Public Use
  Company Number: US-JNJFOC-20031003049

PATIENT
  Age: 74 Year
  Sex: Female
  Weight: 62.1428 kg

DRUGS (4)
  1. REMICADE [Suspect]
     Indication: RHEUMATOID ARTHRITIS
     Dosage: 1 IN 1 DAY INTRAVENOUS
     Route: 042
     Dates: start: 20030801
  2. NORPACE [Concomitant]
  3. SYNTHROID [Concomitant]
  4. METHOTREXATE [Concomitant]

REACTIONS (1)
  - HAEMOGLOBIN DECREASED [None]
